FAERS Safety Report 11772106 (Version 1)
Quarter: 2015Q4

REPORT INFORMATION
  Report Type: Spontaneous
  Country: US (occurrence: None)
  Receive Date: 20151123
  Receipt Date: 20151123
  Transmission Date: 20160304
  Serious: No
  Sender: FDA-Public Use
  Company Number: None

PATIENT
  Sex: Female

DRUGS (8)
  1. VITAMIN D 3 [Concomitant]
  2. GLUCOSAMINE SULFATE [Concomitant]
     Active Substance: GLUCOSAMINE SULFATE
  3. MULTIVITAMIN [Concomitant]
     Active Substance: VITAMINS
  4. METHOTREXATE 2.5MG [Suspect]
     Active Substance: METHOTREXATE
     Indication: RHEUMATOID ARTHRITIS
     Route: 048
     Dates: start: 20140616, end: 20151019
  5. THYROID MEDICATION [Concomitant]
     Active Substance: UNSPECIFIED INGREDIENT
  6. CALCIUM [Concomitant]
     Active Substance: CALCIUM
  7. ZINC [Concomitant]
     Active Substance: ZINC\ZINC CHLORIDE
  8. VITAMIN C [Concomitant]
     Active Substance: ASCORBIC ACID

REACTIONS (3)
  - Anaemia [None]
  - Diffuse large B-cell lymphoma [None]
  - Stomatitis [None]

NARRATIVE: CASE EVENT DATE: 20150707
